FAERS Safety Report 4665003-0 (Version None)
Quarter: 2005Q2

REPORT INFORMATION
  Report Type: 
  Country: None (occurrence: None)
  Receive Date: 20050517
  Receipt Date: 20050428
  Transmission Date: 20051028
  Serious: Yes (Hospitalization)
  Sender: FDA-Public Use
  Company Number: JP_040302744

PATIENT
  Age: 60 Year
  Sex: Male
  Weight: 55 kg

DRUGS (4)
  1. HUMALOG [Suspect]
     Indication: DIABETES MELLITUS NON-INSULIN-DEPENDENT
     Dosage: 16 U DAY
     Dates: start: 20020829
  2. HUMACART-N (INSULIN HUMAN) [Concomitant]
  3. BASEN (VOGLIBOSE) [Concomitant]
  4. ASPIRIN [Concomitant]

REACTIONS (6)
  - BLOOD GLUCOSE INCREASED [None]
  - GLYCOSYLATED HAEMOGLOBIN INCREASED [None]
  - HYPERGLYCAEMIA [None]
  - MUSCLE TWITCHING [None]
  - SELF-MEDICATION [None]
  - TREATMENT NONCOMPLIANCE [None]
